FAERS Safety Report 12304593 (Version 1)
Quarter: 2016Q2

REPORT INFORMATION
  Report Type: Spontaneous
  Country: US (occurrence: None)
  Receive Date: 20160425
  Receipt Date: 20160425
  Transmission Date: 20160815
  Serious: Yes (Other)
  Sender: FDA-Public Use
  Company Number: None

PATIENT
  Age: 72 Year
  Sex: Female
  Weight: 56.7 kg

DRUGS (3)
  1. LISINOPRIL. [Suspect]
     Active Substance: LISINOPRIL
     Route: 048
  2. METANX [Concomitant]
     Active Substance: LEVOMEFOLATE CALCIUM\METHYLCOBALAMIN\PYRIDOXAL PHOSPHATE ANHYDROUS
  3. CARVEDILOIL 3.125MG [Suspect]
     Active Substance: CARVEDILOL
     Route: 048
     Dates: start: 20151223, end: 20160411

REACTIONS (2)
  - Faecaloma [None]
  - Urinary retention [None]

NARRATIVE: CASE EVENT DATE: 20160331
